FAERS Safety Report 7002338-0 (Version None)
Quarter: 2010Q3

REPORT INFORMATION
  Report Type: 
  Country: None (occurrence: None)
  Receive Date: 20100920
  Receipt Date: 20070815
  Transmission Date: 20110219
  Serious: Yes (Other)
  Sender: FDA-Public Use
  Company Number: US-ASTRAZENECA-2006UW08483

PATIENT
  Age: 13158 Day
  Sex: Male
  Weight: 51.7 kg

DRUGS (15)
  1. SEROQUEL [Suspect]
     Indication: SLEEP DISORDER
     Dosage: 25-200 MG
     Route: 048
     Dates: start: 20050330, end: 20050922
  2. SEROQUEL [Suspect]
     Indication: DEPRESSION
     Dosage: 25-200 MG
     Route: 048
     Dates: start: 20050330, end: 20050922
  3. SEROQUEL [Suspect]
     Indication: INSOMNIA
     Dosage: 25-200 MG
     Route: 048
     Dates: start: 20050330, end: 20050922
  4. SEROQUEL [Suspect]
     Dosage: 25MG -200MG
     Route: 048
     Dates: start: 20050518, end: 20050922
  5. SEROQUEL [Suspect]
     Dosage: 25MG -200MG
     Route: 048
     Dates: start: 20050518, end: 20050922
  6. SEROQUEL [Suspect]
     Dosage: 25MG -200MG
     Route: 048
     Dates: start: 20050518, end: 20050922
  7. MIRTAZAPINE [Concomitant]
  8. MIRTAZAPINE [Concomitant]
  9. ZOLOFT [Concomitant]
  10. EFFEXOR XR [Concomitant]
     Indication: DEPRESSION
     Dosage: 37.5MG - 75 MG
     Dates: start: 20050417
  11. TRILEPTAL [Concomitant]
     Indication: CONVULSION
     Dosage: 150MG- 300MG
     Dates: start: 20050521
  12. LEVOTHYROXINE SODIUM [Concomitant]
     Route: 048
     Dates: start: 20050330
  13. TEMAZEPAM [Concomitant]
     Dosage: 15MG -30MG
     Dates: start: 20050721
  14. IBUPROFEN [Concomitant]
     Dosage: 400MG -800MG
     Dates: start: 20050217
  15. METFORMIN [Concomitant]
     Route: 048
     Dates: start: 20050721

REACTIONS (3)
  - DIABETES MELLITUS [None]
  - HYPOTHYROIDISM [None]
  - PANCREATITIS [None]
